FAERS Safety Report 24749490 (Version 1)
Quarter: 2024Q4

REPORT INFORMATION
  Report Type: Spontaneous
  Country: BR (occurrence: BR)
  Receive Date: 20241218
  Receipt Date: 20241218
  Transmission Date: 20250115
  Serious: Yes (Other)
  Sender: NOVO NORDISK
  Company Number: BR-NOVOPROD-1334698

PATIENT
  Sex: Female

DRUGS (1)
  1. SAXENDA [Suspect]
     Active Substance: LIRAGLUTIDE
     Indication: Diabetes mellitus
     Dosage: UNK

REACTIONS (4)
  - Hepatic encephalopathy [Unknown]
  - Hepatic steatosis [Unknown]
  - Weight decreased [Unknown]
  - Off label use [Not Recovered/Not Resolved]
